FAERS Safety Report 8147579-4 (Version None)
Quarter: 2012Q1

REPORT INFORMATION
  Report Type: 
  Country: None (occurrence: None)
  Receive Date: 20120218
  Receipt Date: 20110225
  Transmission Date: 20120608
  Serious: No
  Sender: FDA-Public Use
  Company Number: US-ALLERGAN-1102727US

PATIENT
  Sex: Female

DRUGS (2)
  1. BOTOX COSMETIC [Suspect]
     Indication: SKIN WRINKLING
     Dosage: UNK UNITS, SINGLE
     Route: 030
     Dates: start: 20091201, end: 20091201
  2. BOTOX COSMETIC [Suspect]
     Dosage: UNK UNITS, SINGLE
     Route: 030
     Dates: start: 20100601, end: 20100601

REACTIONS (2)
  - MASS [None]
  - VASODILATATION [None]
